FAERS Safety Report 18729391 (Version 1)
Quarter: 2021Q1

REPORT INFORMATION
  Report Type: Spontaneous
  Country: US (occurrence: US)
  Receive Date: 20210112
  Receipt Date: 20210112
  Transmission Date: 20210419
  Serious: Yes (Other)
  Sender: FDA-Public Use
  Company Number: US-CURIUM-2020000548

PATIENT
  Age: 54 Year
  Sex: Female

DRUGS (1)
  1. SODIUM IODIDE I 131 [Suspect]
     Active Substance: SODIUM IODIDE I-131
     Indication: RADIOACTIVE IODINE THERAPY
     Route: 065
     Dates: start: 2015, end: 2015

REACTIONS (1)
  - Endocrine ophthalmopathy [Unknown]

NARRATIVE: CASE EVENT DATE: 2018
